FAERS Safety Report 6261084-1 (Version None)
Quarter: 2009Q3

REPORT INFORMATION
  Report Type: 
  Country: None (occurrence: None)
  Receive Date: 20090709
  Receipt Date: 20090625
  Transmission Date: 20100115
  Serious: Yes (Other)
  Sender: FDA-Public Use
  Company Number: DE-B.I. PHARMACEUTICALS,INC./RIDGEFIELD-2009-DE-04410DE

PATIENT
  Sex: Female

DRUGS (13)
  1. SIFROL [Suspect]
     Indication: RESTLESS LEGS SYNDROME
     Dosage: 0.18 MG
     Route: 048
     Dates: start: 20080801
  2. ACEMUC 600 MG [Concomitant]
     Dosage: 1 X 1 600 MG
  3. TRIAMETEREN COMP CT 50 [Concomitant]
     Dosage: 50 MG TRIAMTEREN  + 25 MG HYDROCHLOROTHIAZIDE
  4. L-THYROX HEXAL 150 MG [Concomitant]
     Dosage: 150 MG
  5. MOXONIDIN 0,2 [Concomitant]
     Dosage: 0.4 MG
  6. MADOPAR LT [Concomitant]
     Indication: RESTLESS LEGS SYNDROME
     Dosage: LEVODOPA 100 MG + BENSERAZID-HCL 28,5 MG
  7. PIRACEBRAL 800 MG [Concomitant]
     Dosage: 1600 MG
  8. ASS RATIO 100 MG [Concomitant]
     Dosage: 100 MG
  9. PROMETHAZIN TROPFEN [Concomitant]
     Dosage: 30-40 DROPS DURING THE NIGHT
  10. FLUCTIN 20 MG [Concomitant]
     Dosage: 20 MG
  11. AMBODIPIN 10 [Concomitant]
     Dosage: 10 MG
  12. DOXA-PUREN 8 MG [Concomitant]
     Dosage: 8 MG
  13. LANOLOX 2,5 MG [Concomitant]
     Dosage: 1.25 MG

REACTIONS (3)
  - VISION BLURRED [None]
  - VISUAL IMPAIRMENT [None]
  - VITREOUS DETACHMENT [None]
